FAERS Safety Report 8883914 (Version 4)
Quarter: 2015Q1

REPORT INFORMATION
  Report Type: Spontaneous
  Country: US (occurrence: US)
  Receive Date: 20121102
  Receipt Date: 20150119
  Transmission Date: 20150721
  Serious: Yes (Other)
  Sender: FDA-Public Use
  Company Number: US-ASTRAZENECA-2012SE24043

PATIENT
  Age: 62 Year
  Sex: Female
  Weight: 58.1 kg

DRUGS (5)
  1. FLEXERIL [Concomitant]
     Active Substance: CYCLOBENZAPRINE HYDROCHLORIDE
     Indication: MUSCLE SPASMS
  2. OXYCONTIN [Concomitant]
     Active Substance: OXYCODONE HYDROCHLORIDE
  3. CRESTOR [Suspect]
     Active Substance: ROSUVASTATIN CALCIUM
     Route: 048
     Dates: start: 2011
  4. LORTAB [Concomitant]
     Active Substance: ACETAMINOPHEN\HYDROCODONE BITARTRATE
  5. FLU SHOT [Suspect]
     Active Substance: INFLUENZA VIRUS VACCINE
     Indication: INFLUENZA LIKE ILLNESS
     Dosage: UNKNOWN MANUFACTURE
     Route: 065

REACTIONS (15)
  - Back disorder [Unknown]
  - Feeding disorder [Unknown]
  - Pain [Unknown]
  - Polyarthritis [Unknown]
  - Nasopharyngitis [Unknown]
  - Sleep disorder due to a general medical condition [Unknown]
  - Multiple allergies [Unknown]
  - Anxiety [Unknown]
  - Malaise [Unknown]
  - Muscle spasms [Unknown]
  - Bone disorder [Unknown]
  - Dysstasia [Unknown]
  - Scoliosis [Unknown]
  - Influenza like illness [Unknown]
  - Weight decreased [Unknown]

NARRATIVE: CASE EVENT DATE: 2011
